FAERS Safety Report 16715130 (Version 1)
Quarter: 2019Q3

REPORT INFORMATION
  Report Type: Spontaneous
  Country: US (occurrence: US)
  Receive Date: 20190819
  Receipt Date: 20190819
  Transmission Date: 20191005
  Serious: Yes (Other)
  Sender: FDA-Public Use
  Company Number: US-PFIZER INC-2019352729

PATIENT
  Age: 62 Year
  Sex: Female
  Weight: 68.49 kg

DRUGS (2)
  1. PREMARIN [Suspect]
     Active Substance: ESTROGENS, CONJUGATED
  2. LYRICA [Suspect]
     Active Substance: PREGABALIN
     Indication: NERVE INJURY
     Dosage: 200 MG, 3X/DAY
     Route: 048
     Dates: start: 2010

REACTIONS (6)
  - Intentional product use issue [Unknown]
  - Seizure [Unknown]
  - Pain in extremity [Unknown]
  - Memory impairment [Unknown]
  - Peripheral swelling [Unknown]
  - Weight fluctuation [Unknown]
